FAERS Safety Report 24618493 (Version 1)
Quarter: 2024Q4

REPORT INFORMATION
  Report Type: Spontaneous
  Country: US (occurrence: None)
  Receive Date: 20241113
  Receipt Date: 20241113
  Transmission Date: 20250115
  Serious: Yes (Hospitalization)
  Sender: Public
  Company Number: None

PATIENT
  Age: 72 Year
  Sex: Male
  Weight: 100 kg

DRUGS (2)
  1. WARFARIN SODIUM [Suspect]
     Active Substance: WARFARIN SODIUM
     Indication: Atrial fibrillation
     Dosage: 25.00 MG DAILY ORAL?
     Route: 048
     Dates: start: 20240502
  2. ASPIRIN [Suspect]
     Active Substance: ASPIRIN
     Dosage: 81.00 MG DAILY ORAL
     Route: 048
     Dates: start: 20240808

REACTIONS (3)
  - Haematochezia [None]
  - Portal hypertensive gastropathy [None]
  - Portal vein thrombosis [None]

NARRATIVE: CASE EVENT DATE: 20240902
